FAERS Safety Report 11889726 (Version 1)
Quarter: 2016Q1

REPORT INFORMATION
  Report Type: Spontaneous
  Country: CH (occurrence: CH)
  Receive Date: 20160105
  Receipt Date: 20160105
  Transmission Date: 20160526
  Serious: Yes (Hospitalization)
  Sender: FDA-Public Use
  Company Number: PHHY2015CH168605

PATIENT
  Age: 32 Year
  Sex: Female

DRUGS (3)
  1. CLOPIN [Suspect]
     Active Substance: CLOPIDOGREL BISULFATE
     Indication: PSYCHOTIC DISORDER
     Dosage: 150 MG/D
     Route: 048
     Dates: start: 20151124, end: 20151203
  2. RISPERDAL [Concomitant]
     Active Substance: RISPERIDONE
     Indication: PRODUCT USED FOR UNKNOWN INDICATION
     Dosage: 2 MG, BID
     Route: 048
     Dates: start: 2015, end: 20151203
  3. RISPERDAL [Concomitant]
     Active Substance: RISPERIDONE
     Dosage: 1 MG/D
     Route: 065

REACTIONS (2)
  - Blood creatine phosphokinase MB increased [Recovering/Resolving]
  - Dysarthria [Recovering/Resolving]

NARRATIVE: CASE EVENT DATE: 20151203
